FAERS Safety Report 4623334-4 (Version None)
Quarter: 2005Q1

REPORT INFORMATION
  Report Type: 
  Country: None (occurrence: None)
  Receive Date: 20050330
  Receipt Date: 20050222
  Transmission Date: 20050727
  Serious: Yes (Disabling)
  Sender: FDA-Public Use
  Company Number: DE-MERCK-0502DEU00178

PATIENT
  Age: 65 Year
  Sex: Female

DRUGS (4)
  1. FOSAMAX [Suspect]
     Indication: OSTEOPOROSIS
     Route: 048
     Dates: start: 20030218
  2. FOSAMAX [Suspect]
     Indication: SPINAL FRACTURE
     Route: 048
     Dates: start: 20030218
  3. CALCIUM (UNSPECIFIED) [Concomitant]
     Indication: OSTEOPOROSIS
     Route: 048
     Dates: start: 20030218
  4. CHOLECALCIFEROL [Concomitant]
     Indication: OSTEOPOROSIS
     Route: 048
     Dates: start: 20030218

REACTIONS (1)
  - ALOPECIA SCARRING [None]
